FAERS Safety Report 6136347-0 (Version None)
Quarter: 2009Q1

REPORT INFORMATION
  Report Type: 
  Country: None (occurrence: None)
  Receive Date: 20090325
  Receipt Date: 20090312
  Transmission Date: 20090719
  Serious: Yes (Hospitalization)
  Sender: FDA-Public Use
  Company Number: 232789K09USA

PATIENT
  Age: 59 Year
  Sex: Male

DRUGS (2)
  1. REBIF [Suspect]
     Indication: MULTIPLE SCLEROSIS
     Dosage: 44 MCG, 3 IN 1 WEEKS, SUBCUTANEOUS
     Route: 058
     Dates: start: 20070301
  2. UNSPECIFIED PAIN MEDICATION (ALL OTHER THERAPEUTIC PRODUCTS) [Concomitant]

REACTIONS (6)
  - CELLULITIS [None]
  - FEELING ABNORMAL [None]
  - MUSCLE SPASTICITY [None]
  - OEDEMA PERIPHERAL [None]
  - PNEUMONIA [None]
  - SEPSIS SYNDROME [None]
